FAERS Safety Report 10172124 (Version 2)
Quarter: 2014Q2

REPORT INFORMATION
  Report Type: Spontaneous
  Country: CH (occurrence: CH)
  Receive Date: 20140515
  Receipt Date: 20140529
  Transmission Date: 20141212
  Serious: Yes (Hospitalization)
  Sender: FDA-Public Use
  Company Number: PHHY2014CH056400

PATIENT
  Age: 67 Year
  Sex: Male

DRUGS (13)
  1. SINTROM [Suspect]
     Indication: CARDIAC VALVE DISEASE
     Dosage: UNK UKN, UNK
     Route: 048
     Dates: start: 20140305, end: 20140411
  2. SINTROM [Interacting]
     Dosage: UNK UKN, UNK
     Route: 048
     Dates: start: 20140415
  3. METOPROLOL [Interacting]
     Dosage: 50 MG, QD
     Route: 048
  4. LISINOPRIL [Interacting]
     Dosage: 5 MG, QD
     Route: 048
  5. TORASEMIDE [Interacting]
     Dosage: 30 MG, QD
     Route: 048
  6. ASPIRIN CARDIO [Interacting]
     Indication: DIABETIC VASCULAR DISORDER
     Dosage: 100 MG, QD
     Route: 048
  7. PANTOPRAZOLE [Concomitant]
     Indication: PROPHYLACTIC CHEMOTHERAPY
     Dosage: 40 MG, QD
     Route: 048
  8. PANADOL [Concomitant]
     Indication: PAIN
     Dosage: 500 MG, UNK
     Route: 048
  9. NOVOMIX [Concomitant]
     Indication: INSULIN-REQUIRING TYPE 2 DIABETES MELLITUS
     Dosage: (40 IU IN THE MORNING AND 16 IU AT NIGHT)
     Route: 058
  10. CALCIMAGON D3 [Concomitant]
     Indication: PROPHYLACTIC CHEMOTHERAPY
     Dosage: 1 DF, BID
     Route: 048
  11. BENERVA [Concomitant]
     Indication: VITAMIN B1 DEFICIENCY
     Dosage: 1 DF, QD
     Route: 048
  12. IMPORTAL [Concomitant]
     Indication: HEPATIC CIRRHOSIS
     Dosage: 15 ML, BID
     Route: 048
  13. ZOLPIDEM [Concomitant]
     Indication: INSOMNIA
     Dosage: 10 MG, UNK
     Route: 048

REACTIONS (5)
  - Hypotension [Recovered/Resolved]
  - Tachycardia [Recovered/Resolved]
  - Therapeutic response increased [Recovered/Resolved]
  - Haemorrhagic anaemia [Recovered/Resolved]
  - Epistaxis [Recovered/Resolved]
